FAERS Safety Report 9095876 (Version 2)
Quarter: 2013Q1

REPORT INFORMATION
  Report Type: Spontaneous
  Country: US (occurrence: US)
  Receive Date: 20130220
  Receipt Date: 20130315
  Transmission Date: 20140127
  Serious: Yes (Death)
  Sender: FDA-Public Use
  Company Number: US-ELI_LILLY_AND_COMPANY-US201302003186

PATIENT
  Age: 86 Year
  Sex: Male

DRUGS (13)
  1. FORTEO [Suspect]
     Indication: OSTEOPOROSIS
     Dosage: UNK
     Dates: start: 20120216
  2. ISOSORBIDE [Concomitant]
  3. BYSTOLIC [Concomitant]
  4. PRAVASTATIN [Concomitant]
  5. FLOMAX [Concomitant]
  6. TRAMADOL [Concomitant]
  7. NEXIUM [Concomitant]
  8. VITAMIN D3 [Concomitant]
     Dosage: 1000 IU, UNKNOWN
  9. DOCUSATE SODIUM [Concomitant]
  10. MIRALAX [Concomitant]
  11. ZOLOFT [Concomitant]
  12. MEGACE [Concomitant]
  13. SINEMET [Concomitant]

REACTIONS (1)
  - Death [Fatal]
